FAERS Safety Report 24705938 (Version 1)
Quarter: 2024Q4

REPORT INFORMATION
  Report Type: Spontaneous
  Country: US (occurrence: None)
  Receive Date: 20241205
  Receipt Date: 20241205
  Transmission Date: 20250115
  Serious: Yes (Death)
  Sender: Public
  Company Number: None

PATIENT
  Age: 89 Year
  Sex: Male

DRUGS (2)
  1. TACROLIMUS [Suspect]
     Active Substance: TACROLIMUS
     Indication: Renal transplant
     Dosage: 1 MG BID ORAL
     Route: 048
     Dates: start: 20230128, end: 20241126
  2. MYCOPHENOLIC ACID [Suspect]
     Active Substance: MYCOPHENOLIC ACID
     Indication: Renal transplant
     Dosage: 360 MG BID  ORAL;?
     Route: 048
     Dates: start: 20230817, end: 20241126

REACTIONS (2)
  - Renal failure [None]
  - Cardiac failure [None]

NARRATIVE: CASE EVENT DATE: 20241126
